FAERS Safety Report 16473071 (Version 1)
Quarter: 2019Q2

REPORT INFORMATION
  Report Type: Spontaneous
  Country: None (occurrence: US)
  Receive Date: 20190625
  Receipt Date: 20190625
  Transmission Date: 20190711
  Serious: No
  Sender: FDA-Public Use
  Company Number: US-MIKART, LLC-2069560

PATIENT
  Sex: Female

DRUGS (4)
  1. AMIODARONE HYDROCHLORIDE. [Concomitant]
     Active Substance: AMIODARONE HYDROCHLORIDE
  2. HYDROCODONE BITARTRATE AND ACETAMINOPHEN [Suspect]
     Active Substance: ACETAMINOPHEN\HYDROCODONE BITARTRATE
     Route: 048
  3. TIKOSYN [Concomitant]
     Active Substance: DOFETILIDE
     Dates: start: 20171215
  4. EPIDURAL STEROID INJECTIONS [Concomitant]
     Active Substance: UNSPECIFIED INGREDIENT
     Route: 008

REACTIONS (2)
  - Pruritus [Unknown]
  - Blood creatinine increased [Unknown]
